FAERS Safety Report 22175527 (Version 4)
Quarter: 2023Q2

REPORT INFORMATION
  Report Type: Report from Study
  Country: CL (occurrence: CL)
  Receive Date: 20230405
  Receipt Date: 20230623
  Transmission Date: 20230722
  Serious: Yes (Other)
  Sender: FDA-Public Use
  Company Number: CL-002147023-NVSC2023CL005445

PATIENT
  Age: 75 Year
  Sex: Female

DRUGS (4)
  1. PIQRAY [Suspect]
     Active Substance: ALPELISIB
     Indication: Breast cancer
     Dosage: 300 MG, QD, BY MOUTH
     Route: 048
     Dates: start: 20230408
  2. PIQRAY [Suspect]
     Active Substance: ALPELISIB
     Dosage: 300 MG, QD
     Route: 048
  3. PIQRAY [Suspect]
     Active Substance: ALPELISIB
     Dosage: 150 MG (EVERY OTHER DAY) AND 300 MG (2 OF 150MG EVERY OTHER DAY)
     Route: 048
     Dates: start: 20230510
  4. FULVESTRANT [Suspect]
     Active Substance: FULVESTRANT
     Indication: Product used for unknown indication
     Dosage: 500 MG, QMO
     Route: 030

REACTIONS (10)
  - Cellulitis [Unknown]
  - Erythema [Unknown]
  - Malaise [Unknown]
  - COVID-19 [Unknown]
  - Lower limb fracture [Unknown]
  - Gait disturbance [Unknown]
  - Inappropriate schedule of product administration [Unknown]
  - Wound [Unknown]
  - Mouth ulceration [Unknown]
  - Infection [Unknown]

NARRATIVE: CASE EVENT DATE: 20221226
